FAERS Safety Report 6625673-4 (Version None)
Quarter: 2010Q1

REPORT INFORMATION
  Report Type: 
  Country: None (occurrence: None)
  Receive Date: 20100310
  Receipt Date: 20100302
  Transmission Date: 20100710
  Serious: Yes (Hospitalization, Other)
  Sender: FDA-Public Use
  Company Number: JP-ELI_LILLY_AND_COMPANY-JP201001004126

PATIENT
  Age: 55 Year
  Sex: Female

DRUGS (5)
  1. ALIMTA [Suspect]
     Indication: LUNG ADENOCARCINOMA RECURRENT
     Dosage: EVERY THREE WEEKS
     Route: 042
     Dates: start: 20091109, end: 20091221
  2. ALEVIATIN [Concomitant]
     Indication: EPILEPSY
     Dosage: 280 MG, DAILY (1/D)
     Route: 048
     Dates: start: 20091222
  3. DEPAKENE [Concomitant]
     Indication: EPILEPSY
     Dosage: 800 MG, DAILY (1/D)
     Route: 048
     Dates: end: 20091221
  4. FOLIC ACID [Concomitant]
     Dosage: 0.5 MG, DAILY (1/D)
     Route: 048
     Dates: start: 20091102
  5. METHYCOBAL [Concomitant]
     Dosage: ON 02-NOV, 30-NOV, 21-DEC-2009
     Route: 030
     Dates: start: 20091102, end: 20091221

REACTIONS (3)
  - EPILEPSY [None]
  - FACE OEDEMA [None]
  - MALIGNANT NEOPLASM PROGRESSION [None]
